FAERS Safety Report 5341566-7 (Version None)
Quarter: 2007Q2

REPORT INFORMATION
  Report Type: 
  Country: None (occurrence: None)
  Receive Date: 20070601
  Receipt Date: 20070522
  Transmission Date: 20071010
  Serious: Yes (Other)
  Sender: FDA-Public Use
  Company Number: US-JNJFOC-20070505768

PATIENT
  Sex: Female

DRUGS (1)
  1. LEVAQUIN [Suspect]
     Indication: KIDNEY INFECTION
     Route: 048
     Dates: start: 20070515, end: 20070521

REACTIONS (4)
  - COORDINATION ABNORMAL [None]
  - DYSPNOEA [None]
  - SWOLLEN TONGUE [None]
  - VISION BLURRED [None]
